FAERS Safety Report 18484649 (Version 1)
Quarter: 2020Q4

REPORT INFORMATION
  Report Type: Spontaneous
  Country: NL (occurrence: NL)
  Receive Date: 20201110
  Receipt Date: 20201110
  Transmission Date: 20210114
  Serious: Yes (Other)
  Sender: FDA-Public Use
  Company Number: NL-TEVA-2020-NL-1845979

PATIENT
  Age: 39 Year
  Sex: Male
  Weight: 90.4 kg

DRUGS (1)
  1. QUETIAPINE TABLET FO 25MG / BRAND NAME NOT SPECIFIED [Suspect]
     Active Substance: QUETIAPINE
     Indication: AFFECTIVE DISORDER
     Dosage: 75 MILLIGRAM DAILY; 3 X 1, UNIT DOSE: 25 MG, THERAPY END DATE : ASKED BUT UNKNOWN
     Route: 065
     Dates: start: 2007

REACTIONS (1)
  - Suicidal ideation [Not Recovered/Not Resolved]

NARRATIVE: CASE EVENT DATE: 20190201
